FAERS Safety Report 10744767 (Version 4)
Quarter: 2015Q1

REPORT INFORMATION
  Report Type: Spontaneous
  Country: JP (occurrence: JP)
  Receive Date: 20150128
  Receipt Date: 20150324
  Transmission Date: 20150721
  Serious: Yes (Hospitalization, Disabling, Other)
  Sender: FDA-Public Use
  Company Number: JP-PFIZER INC-2015033574

PATIENT
  Age: 73 Year
  Sex: Female
  Weight: 61 kg

DRUGS (20)
  1. CAMPTO [Suspect]
     Active Substance: IRINOTECAN
     Indication: THYMOMA MALIGNANT
     Dosage: 95 MG, 1X/DAY; (60.7 MG/M2)
     Route: 041
     Dates: start: 20140529, end: 20140529
  2. MUCOSTA [Concomitant]
     Active Substance: REBAMIPIDE
     Dosage: UNK
     Dates: start: 20140709, end: 20140713
  3. ZANTAC [Concomitant]
     Active Substance: RANITIDINE HYDROCHLORIDE
     Dosage: UNK
  4. PA [Concomitant]
     Active Substance: ASPIRIN\CAFFEINE\PROMETHAZINE\SALICYLAMIDE
     Dosage: UNK
     Dates: start: 20140710, end: 20140713
  5. PREDONINE [Concomitant]
     Active Substance: PREDNISOLONE\PREDNISOLONE ACETATE\PREDNISOLONE SODIUM SUCCINATE
     Dosage: UNK
     Dates: start: 20140729, end: 20140821
  6. CAMPTO [Suspect]
     Active Substance: IRINOTECAN
     Dosage: 95 MG, 1X/DAY; (60.7 MG/M2)
     Route: 041
     Dates: start: 20140605, end: 20140605
  7. LOXONIN [Concomitant]
     Active Substance: LOXOPROFEN SODIUM
     Dosage: UNK
     Dates: start: 20140709, end: 20140713
  8. MUCODYNE [Concomitant]
     Active Substance: CARBOCYSTEINE
     Dosage: UNK
     Dates: start: 20120731
  9. LOPEMIN [Concomitant]
     Active Substance: LOPERAMIDE HYDROCHLORIDE
     Dosage: UNK
     Dates: start: 20140710, end: 20140713
  10. ALOXI [Concomitant]
     Active Substance: PALONOSETRON HYDROCHLORIDE
     Dosage: UNK
     Dates: start: 20140529, end: 20140710
  11. TIENAM [Concomitant]
     Active Substance: CILASTATIN SODIUM\IMIPENEM
     Dosage: UNK
     Dates: start: 20140728, end: 20140801
  12. CAMPTO [Suspect]
     Active Substance: IRINOTECAN
     Dosage: 95 MG, 1X/DAY; (60.7 MG/M2)
     Route: 041
     Dates: start: 20140612, end: 20140612
  13. CAMPTO [Suspect]
     Active Substance: IRINOTECAN
     Dosage: 95 MG, 1X/DAY;(60.7 MG/M2)
     Route: 041
     Dates: start: 20140710, end: 20140710
  14. DECADRON [Concomitant]
     Active Substance: DEXAMETHASONE
     Dosage: UNK
     Dates: start: 20140530, end: 20140712
  15. CAMPTO [Suspect]
     Active Substance: IRINOTECAN
     Dosage: 95 MG, 1X/DAY; (60.7 MG/M2)
     Route: 041
     Dates: start: 20140703, end: 20140703
  16. GENINAX [Concomitant]
     Active Substance: GARENOXACIN MESYLATE
     Dosage: UNK
     Dates: start: 20140709, end: 20140709
  17. MIYA-BM [Concomitant]
     Active Substance: CLOSTRIDIUM BUTYRICUM SPORES STRAIN M-55
     Dosage: UNK
     Dates: start: 20140709, end: 20140709
  18. SM [Concomitant]
     Dosage: UNK
     Dates: start: 20120119
  19. LYRICA [Concomitant]
     Active Substance: PREGABALIN
     Dosage: UNK
     Dates: start: 20120808
  20. CAMPTO [Suspect]
     Active Substance: IRINOTECAN
     Dosage: 95 MG, 1X/DAY; (60.7 MG/M2)
     Route: 041
     Dates: start: 20140626, end: 20140626

REACTIONS (4)
  - Haemoglobin decreased [Recovered/Resolved]
  - Diarrhoea [Recovered/Resolved]
  - Pyrexia [Recovered/Resolved]
  - Pulmonary alveolar haemorrhage [Recovered/Resolved]

NARRATIVE: CASE EVENT DATE: 20140702
